FAERS Safety Report 15790871 (Version 1)
Quarter: 2019Q1

REPORT INFORMATION
  Report Type: Spontaneous
  Country: US (occurrence: US)
  Receive Date: 20190104
  Receipt Date: 20190104
  Transmission Date: 20190417
  Serious: Yes (Other)
  Sender: FDA-Public Use
  Company Number: US-JNJFOC-20190100715

PATIENT
  Age: 63 Year
  Sex: Female

DRUGS (1)
  1. INVOKANA [Suspect]
     Active Substance: CANAGLIFLOZIN
     Indication: TYPE 2 DIABETES MELLITUS
     Route: 048
     Dates: start: 20140819

REACTIONS (4)
  - Gangrene [Unknown]
  - Osteomyelitis [Unknown]
  - Diabetic foot infection [Unknown]
  - Toe amputation [Unknown]

NARRATIVE: CASE EVENT DATE: 201710
